FAERS Safety Report 15750646 (Version 1)
Quarter: 2018Q4

REPORT INFORMATION
  Report Type: Spontaneous
  Country: US (occurrence: US)
  Receive Date: 20181221
  Receipt Date: 20181221
  Transmission Date: 20190205
  Serious: No
  Sender: FDA-Public Use
  Company Number: US-SA-2018SA390187

PATIENT
  Sex: Male

DRUGS (2)
  1. FLEXALL PAIN RELIEVING [Suspect]
     Active Substance: MENTHOL
     Indication: BACK PAIN
     Dosage: UNK UNK, UNK
  2. FLEXALL PAIN RELIEVING [Suspect]
     Active Substance: MENTHOL
     Indication: NECK PAIN

REACTIONS (1)
  - Expired product administered [Unknown]
